FAERS Safety Report 11548300 (Version 1)
Quarter: 2015Q3

REPORT INFORMATION
  Report Type: Spontaneous
  Country: US (occurrence: US)
  Receive Date: 20150924
  Receipt Date: 20150924
  Transmission Date: 20151125
  Serious: No
  Sender: FDA-Public Use
  Company Number: US-INCYTE CORPORATION-2015IN001253

PATIENT
  Sex: Female
  Weight: 50.34 kg

DRUGS (8)
  1. LYRICA [Concomitant]
     Active Substance: PREGABALIN
  2. VITAMIN B12 [Concomitant]
     Active Substance: CYANOCOBALAMIN
  3. JAKAFI [Suspect]
     Active Substance: RUXOLITINIB
     Indication: MYELOFIBROSIS
     Dosage: 5 MG, BID
     Route: 048
  4. ACIDOPHILUS/PECTIN [Concomitant]
  5. DIAZEPAM. [Suspect]
     Active Substance: DIAZEPAM
     Dosage: 5 MG
  6. LITHIUM CARBONATE. [Concomitant]
     Active Substance: LITHIUM CARBONATE
  7. MELOXICAM. [Concomitant]
     Active Substance: MELOXICAM
  8. OMEGA 3 FISH OIL    /01334101/ [Concomitant]

REACTIONS (3)
  - Feeling abnormal [Recovered/Resolved]
  - Memory impairment [Recovered/Resolved]
  - Incorrect dose administered [Recovered/Resolved]
